FAERS Safety Report 8401572-2 (Version None)
Quarter: 2012Q2

REPORT INFORMATION
  Report Type: 
  Country: None (occurrence: None)
  Receive Date: 20120601
  Receipt Date: 20120210
  Transmission Date: 20120825
  Serious: No
  Sender: FDA-Public Use
  Company Number: US-MYLANLABS-2012S1003161

PATIENT
  Age: 13 Year
  Sex: Female

DRUGS (1)
  1. CLINDAMYCIN AND BENZOYL PEROXIDE [Suspect]
     Indication: ACNE
     Route: 061
     Dates: start: 20110101

REACTIONS (2)
  - ACNE [None]
  - DRUG INEFFECTIVE [None]
